FAERS Safety Report 7057367-8 (Version None)
Quarter: 2010Q4

REPORT INFORMATION
  Report Type: 
  Country: None (occurrence: None)
  Receive Date: 20101022
  Receipt Date: 20101013
  Transmission Date: 20110411
  Serious: Yes (Other)
  Sender: FDA-Public Use
  Company Number: US-JNJFOC-20100605813

PATIENT
  Sex: Female
  Weight: 133.81 kg

DRUGS (10)
  1. REMICADE [Suspect]
     Indication: RHEUMATOID ARTHRITIS
     Route: 042
  2. REMICADE [Suspect]
     Route: 042
  3. BENADRYL [Concomitant]
  4. ACETAMINOPHEN [Concomitant]
     Indication: PREMEDICATION
  5. VICODIN [Concomitant]
  6. BENICAR [Concomitant]
  7. METHOTREXATE [Concomitant]
  8. FOLIC ACID [Concomitant]
  9. ACTOS [Concomitant]
  10. GLIPIZIDE [Concomitant]

REACTIONS (7)
  - BACK PAIN [None]
  - DYSPNOEA [None]
  - HYPERSENSITIVITY [None]
  - MUSCLE SPASMS [None]
  - MUSCULOSKELETAL CHEST PAIN [None]
  - SERUM SICKNESS [None]
  - TYPE IV HYPERSENSITIVITY REACTION [None]
